FAERS Safety Report 15586303 (Version 2)
Quarter: 2019Q3

REPORT INFORMATION
  Report Type: Spontaneous
  Country: US (occurrence: US)
  Receive Date: 20181105
  Receipt Date: 20190925
  Transmission Date: 20191004
  Serious: Yes (Hospitalization, Disabling)
  Sender: FDA-Public Use
  Company Number: US-JNJFOC-20181101700

PATIENT
  Age: 59 Year
  Sex: Female

DRUGS (1)
  1. INVOKANA [Suspect]
     Active Substance: CANAGLIFLOZIN
     Indication: TYPE 2 DIABETES MELLITUS
     Route: 048
     Dates: start: 20140618, end: 20160411

REACTIONS (6)
  - Limb amputation [Unknown]
  - Wound dehiscence [Unknown]
  - Osteomyelitis acute [Unknown]
  - Peripheral ischaemia [Unknown]
  - Gangrene [Unknown]
  - Diabetic foot infection [Unknown]

NARRATIVE: CASE EVENT DATE: 201603
